FAERS Safety Report 5035502-0 (Version None)
Quarter: 2006Q2

REPORT INFORMATION
  Report Type: 
  Country: None (occurrence: None)
  Receive Date: 20060526
  Receipt Date: 20060413
  Transmission Date: 20061013
  Serious: No
  Sender: FDA-Public Use
  Company Number: FABR-11480

PATIENT
  Age: 31 Year
  Sex: Female
  Weight: 57 kg

DRUGS (1)
  1. FABRAZYME [Suspect]
     Indication: FABRY'S DISEASE
     Dates: start: 20050920

REACTIONS (7)
  - ARTHRALGIA [None]
  - ASTHENIA [None]
  - CHILLS [None]
  - FLUSHING [None]
  - HEADACHE [None]
  - NASOPHARYNGITIS [None]
  - PYREXIA [None]
